FAERS Safety Report 11362797 (Version 2)
Quarter: 2015Q3

REPORT INFORMATION
  Report Type: Spontaneous
  Country: JP (occurrence: JP)
  Receive Date: 20150810
  Receipt Date: 20150814
  Transmission Date: 20151125
  Serious: Yes (Death, Hospitalization, Other)
  Sender: FDA-Public Use
  Company Number: JP-CELGENE-JPN-2015072767

PATIENT
  Age: 73 Year
  Sex: Male
  Weight: 45 kg

DRUGS (4)
  1. GEMCITABINE HYDROCHLORIDE. [Suspect]
     Active Substance: GEMCITABINE HYDROCHLORIDE
     Indication: PANCREATIC CARCINOMA METASTATIC
     Dosage: 1500 MILLIGRAM
     Route: 041
     Dates: start: 20150525, end: 20150609
  2. ALOXI [Concomitant]
     Active Substance: PALONOSETRON HYDROCHLORIDE
     Indication: PRODUCT USED FOR UNKNOWN INDICATION
     Dosage: 4 GRAM
     Route: 041
     Dates: start: 20150525, end: 20150609
  3. DEXART [Concomitant]
     Active Substance: DEXAMETHASONE SODIUM PHOSPHATE
     Indication: PRODUCT USED FOR UNKNOWN INDICATION
     Route: 041
     Dates: start: 20150525, end: 20150609
  4. ABRAXANE [Suspect]
     Active Substance: PACLITAXEL
     Indication: PANCREATIC CARCINOMA METASTATIC
     Dosage: 180 MILLIGRAM
     Route: 041
     Dates: start: 20150525, end: 20150609

REACTIONS (5)
  - Sepsis [Unknown]
  - Ileus paralytic [Not Recovered/Not Resolved]
  - Pancreatic carcinoma metastatic [Fatal]
  - Febrile neutropenia [Recovering/Resolving]
  - Malignant ascites [Not Recovered/Not Resolved]

NARRATIVE: CASE EVENT DATE: 20150613
